FAERS Safety Report 5922844-7 (Version None)
Quarter: 2008Q4

REPORT INFORMATION
  Report Type: 
  Country: None (occurrence: None)
  Receive Date: 20081017
  Receipt Date: 20081010
  Transmission Date: 20090506
  Serious: Yes (Hospitalization, Other)
  Sender: FDA-Public Use
  Company Number: PHHY2008FR12130

PATIENT
  Age: 70 Year
  Sex: Male

DRUGS (4)
  1. EXFORGE [Suspect]
     Indication: HYPERTENSION
     Dosage: 160/10 MG PER DAY
     Dates: start: 20080520
  2. TAHOR [Concomitant]
  3. PROPOFAN                           /00765201/ [Concomitant]
  4. NSAID'S [Concomitant]
     Indication: INTERVERTEBRAL DISC PROTRUSION

REACTIONS (5)
  - BLOOD GLUCOSE INCREASED [None]
  - DIABETES MELLITUS [None]
  - DIALYSIS [None]
  - HYPERKALAEMIA [None]
  - RENAL FAILURE [None]
